FAERS Safety Report 14619020 (Version 1)
Quarter: 2018Q1

REPORT INFORMATION
  Report Type: Spontaneous
  Country: CA (occurrence: CA)
  Receive Date: 20180309
  Receipt Date: 20180309
  Transmission Date: 20180509
  Serious: Yes (Disabling)
  Sender: FDA-Public Use
  Company Number: CA-TEVA-2018-CA-866528

PATIENT
  Age: 61 Year
  Sex: Male

DRUGS (2)
  1. SANIS-AMOXICILLIN [Suspect]
     Active Substance: AMOXICILLIN
     Indication: TOOTH INFECTION
     Dosage: 1500 MILLIGRAM DAILY; 500MG 3 TIMES DAILY FOR 10 DAYS. DRUG ACQUIRED VIA RETAIL/REGULAR PHARMACY
     Route: 048
     Dates: start: 20180202, end: 201802
  2. NOVO-PREDNISONE [Suspect]
     Active Substance: PREDNISONE
     Indication: RASH
     Dosage: 50 MILLIGRAM DAILY;
     Route: 048
     Dates: start: 20180212, end: 20180215

REACTIONS (9)
  - Musculoskeletal stiffness [Recovering/Resolving]
  - Urticaria [Recovered/Resolved]
  - Peripheral swelling [Recovered/Resolved]
  - Paresis [Not Recovered/Not Resolved]
  - Arthralgia [Not Recovered/Not Resolved]
  - Gastrooesophageal reflux disease [Unknown]
  - Rash [Recovered/Resolved]
  - Fatigue [Not Recovered/Not Resolved]
  - Inflammation [Not Recovered/Not Resolved]

NARRATIVE: CASE EVENT DATE: 201802
